FAERS Safety Report 15536494 (Version 1)
Quarter: 2018Q4

REPORT INFORMATION
  Report Type: Spontaneous
  Country: PL (occurrence: PL)
  Receive Date: 20181022
  Receipt Date: 20181022
  Transmission Date: 20190205
  Serious: Yes (Disabling, Other)
  Sender: FDA-Public Use
  Company Number: PHHY2018PL131325

PATIENT

DRUGS (1)
  1. TOBRADEX [Suspect]
     Active Substance: DEXAMETHASONE\TOBRAMYCIN
     Indication: PRODUCT USED FOR UNKNOWN INDICATION
     Route: 047

REACTIONS (6)
  - Ulcerative keratitis [Unknown]
  - Product dispensing error [Unknown]
  - Wrong product administered [Unknown]
  - Eye pain [Unknown]
  - Conjunctival scar [Unknown]
  - Blindness [Unknown]
